FAERS Safety Report 11976410 (Version 1)
Quarter: 2016Q1

REPORT INFORMATION
  Report Type: Spontaneous
  Country: US (occurrence: None)
  Receive Date: 20160128
  Receipt Date: 20160128
  Transmission Date: 20160526
  Serious: No
  Sender: FDA-Public Use
  Company Number: None

PATIENT
  Age: 20 Year
  Sex: Female
  Weight: 80.74 kg

DRUGS (3)
  1. VINEGAR SHOTS [Concomitant]
  2. NEXPLANON [Suspect]
     Active Substance: ETONOGESTREL
  3. HERBAL TEAS [Concomitant]
     Active Substance: HERBALS

REACTIONS (16)
  - Acne [None]
  - Breast pain [None]
  - Menorrhagia [None]
  - Gastrointestinal motility disorder [None]
  - Visual impairment [None]
  - Constipation [None]
  - Feeling abnormal [None]
  - Weight increased [None]
  - Mood swings [None]
  - Breast discomfort [None]
  - Headache [None]
  - Pain in extremity [None]
  - Brief psychotic disorder, with postpartum onset [None]
  - Facial paralysis [None]
  - Pupillary disorder [None]
  - Abdominal pain [None]
